FAERS Safety Report 6890393-8 (Version None)
Quarter: 2010Q3

REPORT INFORMATION
  Report Type: 
  Country: None (occurrence: None)
  Receive Date: 20100730
  Receipt Date: 20081120
  Transmission Date: 20110219
  Serious: Yes (Other)
  Sender: FDA-Public Use
  Company Number: US-PFIZER INC-2008082102

PATIENT
  Sex: Male

DRUGS (1)
  1. LIPITOR [Suspect]
     Dates: start: 19990101, end: 20080801

REACTIONS (6)
  - ADVERSE DRUG REACTION [None]
  - BACK PAIN [None]
  - DIZZINESS [None]
  - DYSARTHRIA [None]
  - PAIN IN EXTREMITY [None]
  - SOMNOLENCE [None]
